FAERS Safety Report 6621677-6 (Version None)
Quarter: 2010Q1

REPORT INFORMATION
  Report Type: 
  Country: None (occurrence: None)
  Receive Date: 20100309
  Receipt Date: 20100302
  Transmission Date: 20100710
  Serious: Yes (Disabling)
  Sender: FDA-Public Use
  Company Number: JP-B.I. PHARMACEUTICALS,INC./RIDGEFIELD-2010-BP-00149NB

PATIENT
  Sex: Female
  Weight: 67 kg

DRUGS (12)
  1. MICARDIS [Suspect]
     Dosage: 40 MG
     Route: 048
     Dates: start: 20091211, end: 20100106
  2. CALBLOCK [Concomitant]
     Dosage: 8 MG
     Route: 065
     Dates: start: 20090101
  3. DIART [Concomitant]
     Dosage: 60 MG
     Route: 048
     Dates: start: 20090204, end: 20091216
  4. ONON [Concomitant]
     Dosage: 450 MG
     Route: 048
     Dates: start: 20091104
  5. PIMOBENDAN [Concomitant]
     Dosage: 5 MG
     Route: 048
     Dates: start: 20091118
  6. DIOVAN [Concomitant]
     Dosage: 40 MG
     Route: 065
     Dates: start: 20091127, end: 20091210
  7. KREMEZIN [Concomitant]
     Dosage: 6 G
     Route: 048
     Dates: start: 20091202
  8. MERISLON [Concomitant]
     Dosage: 18 MG
     Route: 048
     Dates: start: 20091221
  9. KINEDAK [Concomitant]
     Dosage: 150 MG
     Route: 065
     Dates: start: 20091221
  10. FERROMIA [Concomitant]
     Dosage: 50 MG
     Route: 065
     Dates: start: 20091204
  11. BIOFERMIN [Concomitant]
     Dosage: 9 G
     Route: 065
  12. HOKUNALIN:TAPE [Concomitant]
     Dosage: 2 MG
     Route: 065

REACTIONS (2)
  - HYPOGLYCAEMIA [None]
  - RENAL IMPAIRMENT [None]
